FAERS Safety Report 15109976 (Version 1)
Quarter: 2018Q3

REPORT INFORMATION
  Report Type: Report from Study
  Country: JP (occurrence: JP)
  Receive Date: 20180705
  Receipt Date: 20180705
  Transmission Date: 20181010
  Serious: Yes (Other)
  Sender: FDA-Public Use
  Company Number: PHBS1996JP00042

PATIENT
  Age: 37 Year
  Sex: Female

DRUGS (4)
  1. SANDOSTATIN [Suspect]
     Active Substance: OCTREOTIDE ACETATE
     Dosage: 100 UG, UNK
     Route: 058
     Dates: start: 19931218, end: 19941228
  2. SANDOSTATIN [Suspect]
     Active Substance: OCTREOTIDE ACETATE
     Dosage: UNK
     Route: 058
     Dates: start: 19930703, end: 19931217
  3. SANDOSTATIN [Suspect]
     Active Substance: OCTREOTIDE ACETATE
     Dosage: 600 UG, UNK
     Route: 058
     Dates: start: 19941229, end: 19951128
  4. SANDOSTATIN [Suspect]
     Active Substance: OCTREOTIDE ACETATE
     Indication: PRODUCT USED FOR UNKNOWN INDICATION
     Dosage: 100 UG, UNK
     Route: 058
     Dates: start: 19930212

REACTIONS (2)
  - Headache [Unknown]
  - Drug dependence [Recovering/Resolving]

NARRATIVE: CASE EVENT DATE: 19941229
